FAERS Safety Report 5413114-4 (Version None)
Quarter: 2007Q3

REPORT INFORMATION
  Report Type: 
  Country: None (occurrence: None)
  Receive Date: 20070813
  Receipt Date: 20070806
  Transmission Date: 20080115
  Serious: Yes (Hospitalization)
  Sender: FDA-Public Use
  Company Number: AU-PFIZER INC-2007065578

PATIENT
  Age: 43 Year
  Sex: Female

DRUGS (7)
  1. DOXORUBICIN [Suspect]
     Indication: BREAST CANCER
     Route: 042
  2. CYCLOPHOSPHAMIDE [Suspect]
     Indication: BREAST CANCER
     Route: 042
  3. METOCLOPRAMIDE [Concomitant]
  4. PROCHLORPERAZINE [Concomitant]
  5. DEXAMETHASONE 0.5MG TAB [Concomitant]
  6. ONDASETRON [Concomitant]
  7. APREPITANT [Concomitant]

REACTIONS (1)
  - PALMAR-PLANTAR ERYTHRODYSAESTHESIA SYNDROME [None]
